FAERS Safety Report 17004311 (Version 1)
Quarter: 2019Q4

REPORT INFORMATION
  Report Type: Spontaneous
  Country: GB (occurrence: GB)
  Receive Date: 20191107
  Receipt Date: 20191107
  Transmission Date: 20200122
  Serious: Yes (Disabling)
  Sender: FDA-Public Use
  Company Number: GB-PFIZER INC-2019477436

PATIENT
  Age: 48 Year
  Sex: Female
  Weight: 76.2 kg

DRUGS (1)
  1. CLINDAMYCIN PHOSPHATE. [Suspect]
     Active Substance: CLINDAMYCIN PHOSPHATE
     Indication: BACTERIAL VAGINOSIS
     Dosage: 5 G, 1X/DAY (20MG/G)
     Route: 067
     Dates: start: 20191010

REACTIONS (3)
  - Adnexa uteri pain [Unknown]
  - Abdominal pain upper [Unknown]
  - Pelvic pain [Unknown]

NARRATIVE: CASE EVENT DATE: 20191011
